FAERS Safety Report 14631961 (Version 3)
Quarter: 2018Q2

REPORT INFORMATION
  Report Type: Report from Study
  Country: US (occurrence: US)
  Receive Date: 20180313
  Receipt Date: 20180516
  Transmission Date: 20180711
  Serious: Yes (Other)
  Sender: FDA-Public Use
  Company Number: US-CLOVIS ONCOLOGY-CLO-2018-000200

PATIENT
  Age: 38 Year
  Sex: Female

DRUGS (1)
  1. RUBRACA [Suspect]
     Active Substance: RUCAPARIB CAMSYLATE
     Indication: BREAST CANCER FEMALE
     Dosage: 600 MG, BID
     Route: 048
     Dates: start: 20180207

REACTIONS (30)
  - Nausea [Not Recovered/Not Resolved]
  - Constipation [Unknown]
  - Headache [Unknown]
  - Nervousness [Unknown]
  - Anxiety [Unknown]
  - Thrombocytopenia [Unknown]
  - Hypokalaemia [Unknown]
  - Bone pain [Unknown]
  - Hypomagnesaemia [Unknown]
  - Malignant neoplasm progression [Not Recovered/Not Resolved]
  - Dyspnoea [Unknown]
  - Rectal haemorrhage [Unknown]
  - Ascites [Unknown]
  - Pleural effusion [Unknown]
  - Cancer pain [Unknown]
  - Vomiting [Not Recovered/Not Resolved]
  - Bradycardia [Unknown]
  - Depression [Unknown]
  - Decreased appetite [Not Recovered/Not Resolved]
  - Fatigue [Not Recovered/Not Resolved]
  - Dysphoria [Unknown]
  - Abdominal mass [Unknown]
  - Dysuria [Unknown]
  - Neuropathy peripheral [Unknown]
  - Off label use [Unknown]
  - Abdominal discomfort [Unknown]
  - Presyncope [Unknown]
  - Anaemia [Unknown]
  - Abdominal pain lower [Unknown]
  - Pruritus [Not Recovered/Not Resolved]

NARRATIVE: CASE EVENT DATE: 2018
